FAERS Safety Report 24649777 (Version 1)
Quarter: 2024Q4

REPORT INFORMATION
  Report Type: Spontaneous
  Country: US (occurrence: US)
  Receive Date: 20241121
  Receipt Date: 20241121
  Transmission Date: 20250115
  Serious: Yes (Other)
  Sender: STRIDES
  Company Number: US-STRIDES ARCOLAB LIMITED-2024SP015098

PATIENT
  Age: 47 Year
  Sex: Female

DRUGS (2)
  1. TENOFOVIR DISOPROXIL FUMARATE [Interacting]
     Active Substance: TENOFOVIR DISOPROXIL FUMARATE
     Indication: Antiretroviral therapy
     Dosage: UNK
     Route: 065
  2. DIDANOSINE [Interacting]
     Active Substance: DIDANOSINE
     Indication: Antiretroviral therapy
     Dosage: 400 MILLIGRAM, QD (FOR 41.1?MONTHS)
     Route: 065

REACTIONS (2)
  - Retinal toxicity [Unknown]
  - Drug interaction [Unknown]
